FAERS Safety Report 10738390 (Version 1)
Quarter: 2015Q1

REPORT INFORMATION
  Report Type: Spontaneous
  Country: US (occurrence: None)
  Receive Date: 20150123
  Receipt Date: 20150123
  Transmission Date: 20150721
  Serious: Yes (Other)
  Sender: FDA-Public Use
  Company Number: None

PATIENT
  Age: 55 Year
  Sex: Female

DRUGS (8)
  1. TRAZODONE [Concomitant]
     Active Substance: TRAZODONE HYDROCHLORIDE
  2. ASPIRIN. [Concomitant]
     Active Substance: ASPIRIN
  3. DIAZEPAM. [Concomitant]
     Active Substance: DIAZEPAM
  4. MODAFINIL. [Concomitant]
     Active Substance: MODAFINIL
  5. BACLOFEN. [Concomitant]
     Active Substance: BACLOFEN
  6. DRONEDARONE [Concomitant]
     Active Substance: DRONEDARONE
  7. AMPYRA [Suspect]
     Active Substance: DALFAMPRIDINE
     Indication: PLASMA CELL MYELOMA
     Route: 048
     Dates: start: 201306
  8. EXTAVIA [Concomitant]
     Active Substance: INTERFERON BETA-1B

REACTIONS (2)
  - Multiple sclerosis relapse [None]
  - Urinary tract infection [None]

NARRATIVE: CASE EVENT DATE: 20141230
